FAERS Safety Report 7598213-3 (Version None)
Quarter: 2011Q3

REPORT INFORMATION
  Report Type: 
  Country: None (occurrence: None)
  Receive Date: 20110708
  Receipt Date: 20110622
  Transmission Date: 20111222
  Serious: No
  Sender: FDA-Public Use
  Company Number: US-B.I. PHARMACEUTICALS,INC./RIDGEFIELD-2011-BP-16153BP

PATIENT
  Age: 84 Year
  Sex: Male

DRUGS (10)
  1. FUROSEMIDE [Concomitant]
     Indication: HYPERTENSION
     Dosage: 40 MG
     Route: 048
  2. PRAVASTATIN [Concomitant]
     Indication: BLOOD CHOLESTEROL INCREASED
     Dosage: 10 MG
     Route: 048
  3. CINNAMON [Concomitant]
     Indication: SUPPLEMENTATION THERAPY
     Route: 048
  4. PRADAXA [Suspect]
     Indication: ATRIAL FIBRILLATION
     Dosage: 300 MG
     Route: 048
     Dates: start: 20110602
  5. FOLIC ACID [Concomitant]
     Indication: SUPPLEMENTATION THERAPY
     Route: 048
  6. VIT B12 [Concomitant]
     Indication: SUPPLEMENTATION THERAPY
     Route: 048
  7. TERAZOSIN HCL [Concomitant]
     Indication: BENIGN PROSTATIC HYPERPLASIA
     Dosage: 2 MG
     Route: 048
  8. EYE VITAMINS [Concomitant]
     Indication: SUPPLEMENTATION THERAPY
     Route: 048
  9. CITALOPRAM HYDROBROMIDE [Concomitant]
     Indication: DEPRESSION
     Route: 048
  10. METFORMIN HCL [Concomitant]
     Indication: DIABETES MELLITUS
     Dosage: 1000 MG
     Route: 048

REACTIONS (2)
  - FATIGUE [None]
  - MUSCULAR WEAKNESS [None]
